FAERS Safety Report 8773670 (Version 3)
Quarter: 2013Q3

REPORT INFORMATION
  Report Type: Report from Study
  Country: US (occurrence: US)
  Receive Date: 20120907
  Receipt Date: 20130917
  Transmission Date: 20140515
  Serious: Yes (Hospitalization, Other)
  Sender: FDA-Public Use
  Company Number: PHEH2012US017252

PATIENT
  Age: 72 Year
  Sex: Female
  Weight: 68 kg

DRUGS (25)
  1. TASIGNA [Suspect]
     Indication: CHRONIC MYELOID LEUKAEMIA
     Dosage: 300 MG, BID
     Route: 048
     Dates: start: 20120504
  2. TASIGNA [Suspect]
     Route: 048
  3. SINGULAIR [Concomitant]
     Dosage: 10 MG, QD
     Route: 048
  4. LASIX [Concomitant]
     Dosage: 40 MG, QD
     Route: 048
  5. NITRO-DUR [Concomitant]
     Dosage: 0.1 MG/H
  6. PROMETHAZINE [Concomitant]
     Dosage: 25 MG, QD
     Route: 048
  7. LEVEMIR [Concomitant]
     Dosage: UNK UKN, UNK
  8. NOVOLOG [Concomitant]
     Dosage: UNK UKN, UNK
     Route: 058
  9. LOPRESSOR [Concomitant]
     Dosage: 50 MG, BID WITH MEALS
     Route: 048
  10. NEXIUM [Concomitant]
     Dosage: 40 MG
  11. MECLIZINE [Concomitant]
     Dosage: 12.5 MG
  12. CRESTOR [Concomitant]
     Dosage: 10 MG
     Route: 048
  13. FEMARA [Concomitant]
     Dosage: 2.5 MG
     Route: 048
     Dates: start: 20120417
  14. SPIRIVA [Concomitant]
     Dosage: 18 UG, QD
  15. ZANAFLEX [Concomitant]
     Dosage: 4 MG
  16. BENICAR [Concomitant]
     Dosage: 20 MG
     Route: 048
  17. XOPENEX HFA [Concomitant]
     Dosage: 45 UG, Q4H
  18. ZETIA [Concomitant]
     Dosage: 10 MG, QD
     Route: 048
  19. LORTAB [Concomitant]
     Dosage: 5 DF
  20. ASPIRIN [Concomitant]
     Dosage: 81 MG
     Route: 048
  21. QVAR [Concomitant]
     Dosage: 40 UG
  22. RANEXA [Concomitant]
     Dosage: 500 MG
  23. COUMADIN [Concomitant]
     Dosage: 3 MG, 3 TIMES WEEKLY
     Route: 048
  24. FLONASE [Concomitant]
     Dosage: 50 UG, IN EACH NOSTRIL ONCE DAILY
  25. NEURONTIN [Concomitant]
     Dosage: 600 MG, TID
     Route: 048

REACTIONS (22)
  - Cerebrovascular accident [Recovering/Resolving]
  - Sensory loss [Unknown]
  - Motor dysfunction [Unknown]
  - Speech disorder [Unknown]
  - Aphasia [Unknown]
  - Coordination abnormal [Unknown]
  - Dizziness [Unknown]
  - Gait disturbance [Unknown]
  - Fall [Unknown]
  - Dysphagia [Unknown]
  - Confusional state [Unknown]
  - Disorientation [Unknown]
  - Malignant neoplasm progression [Unknown]
  - Chronic myeloid leukaemia [Unknown]
  - Anaemia [Unknown]
  - Neoplasm skin [Unknown]
  - Formication [Unknown]
  - Fluid retention [Unknown]
  - Pruritus [Unknown]
  - Abdominal discomfort [Unknown]
  - Vomiting [Unknown]
  - White blood cell count decreased [Unknown]
